FAERS Safety Report 19602678 (Version 2)
Quarter: 2021Q3

REPORT INFORMATION
  Report Type: Other
  Country: CA (occurrence: CA)
  Receive Date: 20210724
  Receipt Date: 20210830
  Transmission Date: 20211014
  Serious: Yes (Other)
  Sender: FDA-Public Use
  Company Number: CA-CELLTRION INC.-2021CA009617

PATIENT

DRUGS (2)
  1. PREDNISONE. [Concomitant]
     Active Substance: PREDNISONE
     Dosage: 1 DOSAGE FORM
  2. RITUXIMAB. [Suspect]
     Active Substance: RITUXIMAB
     Indication: GRANULOMATOSIS WITH POLYANGIITIS
     Dosage: 750 MG, 1 EVERY 1 WEEK
     Route: 042

REACTIONS (6)
  - Drug ineffective [Not Recovered/Not Resolved]
  - Off label use [Not Recovered/Not Resolved]
  - Overdose [Unknown]
  - Product use issue [Not Recovered/Not Resolved]
  - Infection [Not Recovered/Not Resolved]
  - Condition aggravated [Not Recovered/Not Resolved]
